FAERS Safety Report 12734431 (Version 2)
Quarter: 2016Q3

REPORT INFORMATION
  Report Type: Spontaneous
  Country: US (occurrence: US)
  Receive Date: 20160912
  Receipt Date: 20160921
  Transmission Date: 20161109
  Serious: Yes (Hospitalization)
  Sender: FDA-Public Use
  Company Number: US-JNJFOC-20160700831

PATIENT
  Age: 80 Year
  Sex: Male
  Weight: 86.27 kg

DRUGS (3)
  1. XARELTO [Suspect]
     Active Substance: RIVAROXABAN
     Indication: CEREBROVASCULAR ACCIDENT PROPHYLAXIS
     Dosage: 15MG; 20MG
     Route: 048
     Dates: start: 20120827, end: 20150303
  2. XARELTO [Suspect]
     Active Substance: RIVAROXABAN
     Indication: ATRIAL FIBRILLATION
     Dosage: 15MG; 20MG
     Route: 048
     Dates: start: 20120827, end: 20150303
  3. XARELTO [Suspect]
     Active Substance: RIVAROXABAN
     Indication: THROMBOSIS PROPHYLAXIS
     Dosage: 15MG; 20MG
     Route: 048
     Dates: start: 20120827, end: 20150303

REACTIONS (2)
  - Haemorrhage [Unknown]
  - Haemoptysis [Unknown]

NARRATIVE: CASE EVENT DATE: 20140626
